FAERS Safety Report 24738772 (Version 1)
Quarter: 2024Q4

REPORT INFORMATION
  Report Type: Spontaneous
  Country: US (occurrence: US)
  Receive Date: 20241216
  Receipt Date: 20241216
  Transmission Date: 20250114
  Serious: Yes (Death, Life-Threatening, Other)
  Sender: AMGEN
  Company Number: US-AMGEN-USASP2024241644

PATIENT

DRUGS (6)
  1. BEVACIZUMAB [Suspect]
     Active Substance: BEVACIZUMAB
     Indication: Colorectal cancer metastatic
     Dosage: 5 MILLIGRAM/KILOGRAM ON DAY 1
     Route: 040
  2. TRILACICLIB [Concomitant]
     Active Substance: TRILACICLIB
     Dosage: 240 MILLIGRAM/SQ. METER
     Route: 040
  3. FLUOROURACIL\IRINOTECAN\LEUCOVORIN\OXALIPLATIN [Concomitant]
     Active Substance: FLUOROURACIL\IRINOTECAN\LEUCOVORIN\OXALIPLATIN
     Dosage: UNK
     Route: 040
  4. IRINOTECAN [Concomitant]
     Active Substance: IRINOTECAN
     Dosage: 165 MILLIGRAM/SQ. METER
     Route: 040
  5. OXALIPLATIN [Concomitant]
     Active Substance: OXALIPLATIN
     Dosage: 85 MILLIGRAM/SQ. METER
     Route: 040
  6. LEUCOVORIN [Concomitant]
     Active Substance: LEUCOVORIN\LEUCOVORIN CALCIUM
     Dosage: 400 MILLIGRAM/SQ. METER

REACTIONS (45)
  - Injection site reaction [Fatal]
  - Respiratory failure [Fatal]
  - Pulmonary thrombosis [Fatal]
  - Intestinal sepsis [Fatal]
  - Gastrointestinal obstruction [Fatal]
  - Mental disorder [Fatal]
  - Colorectal cancer metastatic [Fatal]
  - COVID-19 [Fatal]
  - Ill-defined disorder [Fatal]
  - Administration site reaction [Fatal]
  - Acute respiratory failure [Fatal]
  - Death [Fatal]
  - Hypertension [Fatal]
  - Syncope [Fatal]
  - Alanine aminotransferase increased [Unknown]
  - Neutropenia [Unknown]
  - Febrile neutropenia [Unknown]
  - Thrombocytopenia [Unknown]
  - Leukopenia [Unknown]
  - Peripheral sensory neuropathy [Unknown]
  - Hypokalaemia [Unknown]
  - Stomatitis [Unknown]
  - Weight decreased [Unknown]
  - Neurotoxicity [Unknown]
  - Aspartate aminotransferase increased [Unknown]
  - Anaemia [Unknown]
  - Pyrexia [Unknown]
  - Nausea [Unknown]
  - Diarrhoea [Unknown]
  - Fatigue [Unknown]
  - Vomiting [Unknown]
  - Constipation [Unknown]
  - Neuropathy peripheral [Unknown]
  - Decreased appetite [Unknown]
  - Abdominal pain [Unknown]
  - Asthenia [Unknown]
  - Proteinuria [Unknown]
  - Mucosal inflammation [Unknown]
  - Epistaxis [Unknown]
  - Adverse event [Unknown]
  - Paraesthesia [Unknown]
  - Muscle spasms [Unknown]
  - Dizziness [Unknown]
  - Alopecia [Unknown]
  - Headache [Unknown]
